FAERS Safety Report 5900080-8 (Version None)
Quarter: 2008Q3

REPORT INFORMATION
  Report Type: 
  Country: None (occurrence: None)
  Receive Date: 20080925
  Receipt Date: 20080919
  Transmission Date: 20090109
  Serious: No
  Sender: FDA-Public Use
  Company Number: 08H-163-0314854-00

PATIENT

DRUGS (1)
  1. HEPARIN SODIUM INJECTION [Suspect]
     Indication: DRUG USE FOR UNKNOWN INDICATION
     Dates: start: 20080813

REACTIONS (4)
  - COAGULATION TIME PROLONGED [None]
  - DEVICE MALFUNCTION [None]
  - HAEMORRHAGE [None]
  - UNDERDOSE [None]
